FAERS Safety Report 26196663 (Version 1)
Quarter: 2025Q4

REPORT INFORMATION
  Report Type: Spontaneous
  Country: JP (occurrence: JP)
  Receive Date: 20251224
  Receipt Date: 20251224
  Transmission Date: 20260118
  Serious: Yes (Hospitalization, Other)
  Sender: RANBAXY
  Company Number: JP-SUN PHARMACEUTICAL INDUSTRIES INC-2025R1-543188

PATIENT
  Age: 33 Year
  Sex: Female

DRUGS (2)
  1. ESZOPICLONE [Suspect]
     Active Substance: ESZOPICLONE
     Indication: Product used for unknown indication
     Dosage: 26 TABLETS OF ESZOPICLONE (3 MG),
     Route: 048
  2. DAYVIGO [Suspect]
     Active Substance: LEMBOREXANT
     Indication: Product used for unknown indication
     Dosage: 146 TABLETS OF LEMBOREXANT (5 MG)
     Route: 048

REACTIONS (3)
  - Intentional overdose [Unknown]
  - Sedation [Recovering/Resolving]
  - Drug level increased [Recovering/Resolving]
